FAERS Safety Report 22119433 (Version 1)
Quarter: 2023Q1

REPORT INFORMATION
  Report Type: Spontaneous
  Country: JP (occurrence: JP)
  Receive Date: 20230321
  Receipt Date: 20230321
  Transmission Date: 20230417
  Serious: Yes (Death)
  Sender: FDA-Public Use
  Company Number: JP-Eisai-202215894_LEN-EC_P_1

PATIENT
  Age: 55 Year
  Sex: Female

DRUGS (3)
  1. LENVIMA [Suspect]
     Active Substance: LENVATINIB
     Indication: Endometrial cancer
     Route: 048
  2. LENVIMA [Suspect]
     Active Substance: LENVATINIB
     Route: 048
  3. KEYTRUDA [Suspect]
     Active Substance: PEMBROLIZUMAB
     Indication: Endometrial cancer
     Dosage: 8 CYCLES
     Route: 041

REACTIONS (5)
  - Death [Fatal]
  - Hypothyroidism [Unknown]
  - Hypertension [Unknown]
  - Adrenocorticotropic hormone deficiency [Unknown]
  - Palmar-plantar erythrodysaesthesia syndrome [Unknown]
